FAERS Safety Report 5703680-3 (Version None)
Quarter: 2008Q2

REPORT INFORMATION
  Report Type: 
  Country: None (occurrence: None)
  Receive Date: 20080413
  Receipt Date: 20080403
  Transmission Date: 20081010
  Serious: Yes (Hospitalization)
  Sender: FDA-Public Use
  Company Number: PHHY2008IT04549

PATIENT
  Age: 66 Year
  Sex: Female

DRUGS (3)
  1. ZOMETA [Suspect]
     Indication: MULTIPLE MYELOMA
     Dosage: 4MG, QMO
     Route: 042
     Dates: start: 20051101, end: 20070401
  2. MELPHALAN [Concomitant]
  3. DEXAMETHASONE [Concomitant]

REACTIONS (3)
  - DENTAL OPERATION [None]
  - OSTEOMYELITIS [None]
  - SURGERY [None]
